FAERS Safety Report 8524430-1 (Version None)
Quarter: 2012Q3

REPORT INFORMATION
  Report Type: 
  Country: None (occurrence: None)
  Receive Date: 20120716
  Receipt Date: 20120716
  Transmission Date: 20120928
  Serious: No
  Sender: FDA-Public Use
  Company Number: None

PATIENT
  Sex: Female
  Weight: 114.1 kg

DRUGS (3)
  1. POTASSIUM CHLORIDE [Concomitant]
  2. PACLITAXEL [Suspect]
     Dosage: 270 MG
  3. CARBOPLATIN [Suspect]
     Dosage: 688 MG

REACTIONS (1)
  - HYPERTENSION [None]
